FAERS Safety Report 22144068 (Version 1)
Quarter: 2023Q1

REPORT INFORMATION
  Report Type: Report from Study
  Country: US (occurrence: US)
  Receive Date: 20230327
  Receipt Date: 20230327
  Transmission Date: 20230417
  Serious: Yes (Hospitalization)
  Sender: FDA-Public Use
  Company Number: US-JNJFOC-20230354504

PATIENT
  Age: 22 Year
  Sex: Female
  Weight: 51.756 kg

DRUGS (2)
  1. INFLIXIMAB [Suspect]
     Active Substance: INFLIXIMAB
     Indication: Inflammatory bowel disease
     Route: 041
     Dates: start: 20110825, end: 20110908
  2. STELARA [Concomitant]
     Active Substance: USTEKINUMAB
     Dosage: DATE OF LAST ADMINISTRATION PRIOR TO THE EVENT WAS IN 2022
     Dates: start: 20190319

REACTIONS (1)
  - Nephrolithiasis [Recovered/Resolved]

NARRATIVE: CASE EVENT DATE: 20230101
